FAERS Safety Report 18194483 (Version 1)
Quarter: 2020Q3

REPORT INFORMATION
  Report Type: Spontaneous
  Country: CH (occurrence: CH)
  Receive Date: 20200825
  Receipt Date: 20200825
  Transmission Date: 20201103
  Serious: Yes (Other)
  Sender: FDA-Public Use
  Company Number: CH-AMGEN-CHESP2020134488

PATIENT

DRUGS (2)
  1. NEUPOGEN [Suspect]
     Active Substance: FILGRASTIM
     Indication: HAEMATOPOIETIC STEM CELL MOBILISATION
     Dosage: UNK
     Route: 065
  2. CYCLOPHOSPHAMIDE. [Concomitant]
     Active Substance: CYCLOPHOSPHAMIDE

REACTIONS (21)
  - Pulmonary embolism [Unknown]
  - Cytomegalovirus infection [Unknown]
  - Gastroenteritis [Unknown]
  - Varicella zoster virus infection [Unknown]
  - Enteritis [Unknown]
  - Hypotension [Unknown]
  - Cholelithiasis [Unknown]
  - Mucosal inflammation [Unknown]
  - Laryngitis [Unknown]
  - BK virus infection [Unknown]
  - Herpes virus infection [Unknown]
  - Epistaxis [Unknown]
  - Cystitis haemorrhagic [Unknown]
  - Abscess neck [Unknown]
  - Gastrointestinal haemorrhage [Unknown]
  - Mania [Unknown]
  - Uhthoff^s phenomenon [Unknown]
  - Upper respiratory tract infection [Unknown]
  - Urinary tract infection [Unknown]
  - Ileus [Unknown]
  - Off label use [Unknown]
